FAERS Safety Report 20199357 (Version 2)
Quarter: 2022Q1

REPORT INFORMATION
  Report Type: Spontaneous
  Country: US (occurrence: None)
  Receive Date: 20211217
  Receipt Date: 20220111
  Transmission Date: 20220423
  Serious: No
  Sender: FDA-Public Use
  Company Number: 2021A829479

PATIENT
  Sex: Male
  Weight: 120.2 kg

DRUGS (2)
  1. SYMBICORT [Suspect]
     Active Substance: BUDESONIDE\FORMOTEROL FUMARATE DIHYDRATE
     Indication: Respiration abnormal
     Dosage: 160/4.5 MCG 120 INHALATAIONS, 2 PUFFS TWICE A DAY THEY HAVE BEEN TAKING 2 PUFFS ONCE A DAY
     Route: 055
  2. SYMBICORT [Suspect]
     Active Substance: BUDESONIDE\FORMOTEROL FUMARATE DIHYDRATE
     Indication: Respiration abnormal
     Dosage: 160/4.5 MCG 120 INHALATAIONS, ONE PUFF ONCE DAY.
     Route: 055

REACTIONS (7)
  - Dyspnoea exertional [Unknown]
  - Dyspnoea [Unknown]
  - Respiratory distress [Unknown]
  - Intentional product misuse [Unknown]
  - Intentional device misuse [Unknown]
  - Product use complaint [Unknown]
  - Device malfunction [Unknown]
